FAERS Safety Report 5422019-4 (Version None)
Quarter: 2007Q3

REPORT INFORMATION
  Report Type: 
  Country: None (occurrence: None)
  Receive Date: 20070822
  Receipt Date: 20070810
  Transmission Date: 20080115
  Serious: Yes (Hospitalization)
  Sender: FDA-Public Use
  Company Number: HQWYE521810AUG07

PATIENT
  Age: 96 Year
  Sex: Female

DRUGS (6)
  1. PANTOPRAZOLE SODIUM [Suspect]
     Indication: GASTRITIS
     Route: 048
     Dates: start: 20061219, end: 20061221
  2. PANTOPRAZOLE SODIUM [Suspect]
     Route: 048
     Dates: start: 20070104, end: 20070118
  3. NORVASC [Concomitant]
  4. KALIUM [Concomitant]
     Dosage: ^10 MVAL^ DAILY
     Dates: start: 20070104
  5. AAS [Concomitant]
     Dates: start: 20070104
  6. LASIX [Concomitant]
     Dates: start: 20070104

REACTIONS (2)
  - CONDITION AGGRAVATED [None]
  - RENAL FAILURE [None]
